FAERS Safety Report 16787466 (Version 2)
Quarter: 2019Q3

REPORT INFORMATION
  Report Type: Spontaneous
  Country: ES (occurrence: ES)
  Receive Date: 20190909
  Receipt Date: 20190927
  Transmission Date: 20191005
  Serious: Yes (Hospitalization)
  Sender: FDA-Public Use
  Company Number: ES-JNJFOC-20190824134

PATIENT
  Age: 91 Year
  Sex: Female

DRUGS (3)
  1. RISPERDAL [Suspect]
     Active Substance: RISPERIDONE
     Indication: DEMENTIA ALZHEIMER^S TYPE
     Dosage: 0.5 MG IN THE MORNING AND 0.5 MG AT NIGHT
     Route: 048
     Dates: start: 20190725
  2. LORAZEPAM. [Interacting]
     Active Substance: LORAZEPAM
     Indication: PRODUCT USED FOR UNKNOWN INDICATION
     Route: 065
  3. RISPERDAL [Interacting]
     Active Substance: RISPERIDONE
     Dosage: 0.5 MG IN THE MORNING, 0.5 MG IN THE AFTERNOON AND 1 MG AT NIGHT
     Route: 048
     Dates: start: 20190813

REACTIONS (6)
  - Cholelithiasis [Not Recovered/Not Resolved]
  - Off label use [Unknown]
  - Drug interaction [Not Recovered/Not Resolved]
  - Blood pressure decreased [Not Recovered/Not Resolved]
  - Hallucination [Not Recovered/Not Resolved]
  - Inappropriate schedule of product administration [Unknown]

NARRATIVE: CASE EVENT DATE: 20190725
